FAERS Safety Report 5415674-6 (Version None)
Quarter: 2007Q3

REPORT INFORMATION
  Report Type: 
  Country: None (occurrence: None)
  Receive Date: 20070815
  Receipt Date: 20070509
  Transmission Date: 20080115
  Serious: Yes (Other)
  Sender: FDA-Public Use
  Company Number: US-BRISTOL-MYERS SQUIBB COMPANY-13774211

PATIENT
  Sex: Female

DRUGS (2)
  1. TEQUIN [Suspect]
     Indication: RESPIRATORY TRACT INFECTION
     Dates: start: 20050101
  2. LEVAQUIN [Suspect]
     Indication: RESPIRATORY TRACT INFECTION
     Dates: start: 20060901

REACTIONS (3)
  - ARTHRALGIA [None]
  - HYPERSENSITIVITY [None]
  - URTICARIA [None]
